FAERS Safety Report 8546319-4 (Version None)
Quarter: 2012Q3

REPORT INFORMATION
  Report Type: 
  Country: None (occurrence: None)
  Receive Date: 20120727
  Receipt Date: 20111214
  Transmission Date: 20120928
  Serious: No
  Sender: FDA-Public Use
  Company Number: US-ASTRAZENECA-2011SE75857

PATIENT
  Age: 39 Year
  Sex: Female
  Weight: 73.5 kg

DRUGS (5)
  1. TOPAMAX [Concomitant]
     Indication: MIGRAINE
  2. SEROQUEL [Suspect]
     Indication: SOMNOLENCE
     Route: 048
  3. SEROQUEL [Suspect]
     Route: 048
     Dates: start: 20111202
  4. CLOMIPHENE CITRATE [Concomitant]
     Indication: CONVULSION
  5. SEROQUEL [Suspect]
     Route: 048
     Dates: start: 20100101, end: 20111202

REACTIONS (4)
  - OFF LABEL USE [None]
  - THERAPEUTIC RESPONSE DECREASED [None]
  - HALLUCINATIONS, MIXED [None]
  - INSOMNIA [None]
